FAERS Safety Report 15865579 (Version 2)
Quarter: 2019Q1

REPORT INFORMATION
  Report Type: Spontaneous
  Country: US (occurrence: US)
  Receive Date: 20190125
  Receipt Date: 20190307
  Transmission Date: 20190417
  Serious: No
  Sender: FDA-Public Use
  Company Number: US-AMGEN-USASP2019009148

PATIENT
  Age: 60 Year
  Sex: Male
  Weight: 102.49 kg

DRUGS (2)
  1. REPATHA [Suspect]
     Active Substance: EVOLOCUMAB
     Dosage: UNK
     Route: 065
     Dates: start: 201812
  2. REPATHA [Suspect]
     Active Substance: EVOLOCUMAB
     Indication: PRODUCT USED FOR UNKNOWN INDICATION
     Dosage: 140 MG, Q2WK
     Route: 065
     Dates: start: 20180612

REACTIONS (3)
  - Wrong technique in product usage process [Unknown]
  - Injection site discolouration [Recovered/Resolved]
  - Injection site pruritus [Recovered/Resolved]

NARRATIVE: CASE EVENT DATE: 201812
